FAERS Safety Report 9675408 (Version 1)
Quarter: 2013Q4

REPORT INFORMATION
  Report Type: Spontaneous
  Country: FR (occurrence: FR)
  Receive Date: 20131107
  Receipt Date: 20131107
  Transmission Date: 20140711
  Serious: Yes (Hospitalization)
  Sender: FDA-Public Use
  Company Number: FR-MYLANLABS-2013S1023971

PATIENT
  Age: 70 Year
  Sex: Female

DRUGS (20)
  1. ALPRAZOLAM [Suspect]
     Indication: PRODUCT USED FOR UNKNOWN INDICATION
     Route: 048
     Dates: start: 20130911, end: 20130916
  2. ALPRAZOLAM [Suspect]
     Indication: PRODUCT USED FOR UNKNOWN INDICATION
     Route: 048
     Dates: start: 20130921, end: 20130925
  3. PRIMPERAN [Suspect]
     Indication: NAUSEA
     Route: 048
     Dates: start: 20130920, end: 20130925
  4. CEFTRIAXONE [Suspect]
     Indication: PRODUCT USED FOR UNKNOWN INDICATION
     Route: 030
     Dates: start: 20130912, end: 20130912
  5. CEFTRIAXONE [Suspect]
     Indication: PRODUCT USED FOR UNKNOWN INDICATION
     Route: 030
     Dates: start: 20130916, end: 20130922
  6. AVLOCARDYL [Concomitant]
     Indication: PRODUCT USED FOR UNKNOWN INDICATION
  7. ALDACTAZINE [Concomitant]
     Indication: PRODUCT USED FOR UNKNOWN INDICATION
  8. KARDEGIC [Concomitant]
     Indication: PRODUCT USED FOR UNKNOWN INDICATION
  9. FENOFIBRATE [Concomitant]
     Indication: PRODUCT USED FOR UNKNOWN INDICATION
  10. ACEBUTOLOL [Concomitant]
     Indication: PRODUCT USED FOR UNKNOWN INDICATION
  11. COTAREG [Concomitant]
     Indication: PRODUCT USED FOR UNKNOWN INDICATION
  12. UVEDOSE [Concomitant]
     Indication: PRODUCT USED FOR UNKNOWN INDICATION
  13. MOPRAL [Concomitant]
     Indication: PRODUCT USED FOR UNKNOWN INDICATION
  14. DEXERYL /00557601/ [Concomitant]
     Indication: PRODUCT USED FOR UNKNOWN INDICATION
  15. FORTIMEL [Concomitant]
     Indication: PRODUCT USED FOR UNKNOWN INDICATION
  16. DIFFU K [Concomitant]
     Indication: PRODUCT USED FOR UNKNOWN INDICATION
  17. PARACETAMOL [Concomitant]
     Indication: PRODUCT USED FOR UNKNOWN INDICATION
  18. ACUPAN [Concomitant]
     Indication: PRODUCT USED FOR UNKNOWN INDICATION
  19. MOVICOL [Concomitant]
     Indication: PRODUCT USED FOR UNKNOWN INDICATION
  20. ERYTHROMYCIN [Concomitant]
     Indication: PRODUCT USED FOR UNKNOWN INDICATION

REACTIONS (3)
  - Rash [Recovered/Resolved]
  - Pruritus [Recovered/Resolved]
  - Eosinophilia [Recovered/Resolved]
